FAERS Safety Report 5115012-2 (Version None)
Quarter: 2006Q3

REPORT INFORMATION
  Report Type: 
  Country: None (occurrence: None)
  Receive Date: 20060926
  Receipt Date: 20060918
  Transmission Date: 20061208
  Serious: Yes (Other)
  Sender: FDA-Public Use
  Company Number: US-BRISTOL-MYERS SQUIBB COMPANY-13514849

PATIENT
  Age: 8 Year
  Sex: Male

DRUGS (5)
  1. ABILIFY [Suspect]
     Indication: BIPOLAR DISORDER
  2. DEPAKOTE [Concomitant]
     Indication: BIPOLAR DISORDER
  3. KLONOPIN [Concomitant]
     Indication: BIPOLAR DISORDER
  4. FOCALIN [Concomitant]
     Indication: BIPOLAR DISORDER
  5. PROZAC [Concomitant]
     Indication: BIPOLAR DISORDER

REACTIONS (1)
  - SEROTONIN SYNDROME [None]
